FAERS Safety Report 13529009 (Version 1)
Quarter: 2017Q2

REPORT INFORMATION
  Report Type: Spontaneous
  Country: US (occurrence: US)
  Receive Date: 20170509
  Receipt Date: 20170509
  Transmission Date: 20170830
  Serious: Yes (Hospitalization)
  Sender: FDA-Public Use
  Company Number: US-VIFOR (INTERNATIONAL) INC.-VIT-2017-04985

PATIENT
  Age: 64 Year
  Sex: Female

DRUGS (8)
  1. FOSRENOL [Concomitant]
     Active Substance: LANTHANUM CARBONATE
  2. CARVEDILOL. [Concomitant]
     Active Substance: CARVEDILOL
  3. MAGNESIUM HYDROXIDE. [Concomitant]
     Active Substance: MAGNESIUM HYDROXIDE
  4. OMEPRAZOLE. [Concomitant]
     Active Substance: OMEPRAZOLE
  5. VELTASSA [Suspect]
     Active Substance: PATIROMER
     Indication: HYPERKALAEMIA
     Route: 048
     Dates: start: 20170113
  6. LOSARTAN. [Concomitant]
     Active Substance: LOSARTAN
  7. AMLODIPINE [Concomitant]
     Active Substance: AMLODIPINE BESYLATE
  8. MONTELUKAST [Concomitant]
     Active Substance: MONTELUKAST SODIUM

REACTIONS (4)
  - Drug dose omission [Unknown]
  - Gastrointestinal polyp haemorrhage [Unknown]
  - Full blood count decreased [Unknown]
  - Polypectomy [Unknown]

NARRATIVE: CASE EVENT DATE: 20170424
